FAERS Safety Report 15246588 (Version 2)
Quarter: 2019Q1

REPORT INFORMATION
  Report Type: Spontaneous
  Country: TN (occurrence: TN)
  Receive Date: 20180806
  Receipt Date: 20190326
  Transmission Date: 20190417
  Serious: Yes (Other)
  Sender: FDA-Public Use
  Company Number: TN-ALLERGAN-1681491US

PATIENT
  Sex: Female

DRUGS (2)
  1. BOTOX [Suspect]
     Active Substance: ONABOTULINUMTOXINA
     Indication: BLEPHAROSPASM
     Dosage: 40 UNITS
     Route: 030
  2. BOTOX [Suspect]
     Active Substance: ONABOTULINUMTOXINA
     Dosage: UNK, SINGLE
     Route: 030
     Dates: start: 20160429, end: 20160429

REACTIONS (18)
  - Speech disorder [Unknown]
  - Asthenia [Unknown]
  - Schizophrenia [Unknown]
  - Hyperacusis [Unknown]
  - Torticollis [Unknown]
  - Adverse event [Unknown]
  - Movement disorder [Unknown]
  - Paraesthesia [Unknown]
  - Epilepsy [Unknown]
  - Clonic convulsion [Unknown]
  - Headache [Unknown]
  - Intraocular pressure test [Unknown]
  - Decubitus ulcer [Unknown]
  - Vertigo [Unknown]
  - Eyelid function disorder [Unknown]
  - Parosmia [Unknown]
  - Emotional distress [Unknown]
  - Contusion [Unknown]
